FAERS Safety Report 5553119-6 (Version None)
Quarter: 2007Q4

REPORT INFORMATION
  Report Type: 
  Country: None (occurrence: None)
  Receive Date: 20071211
  Receipt Date: 20071203
  Transmission Date: 20080405
  Serious: Yes (Other)
  Sender: FDA-Public Use
  Company Number: CHPA2007US13108

PATIENT
  Age: 9 Year
  Sex: Male
  Weight: 54.4 kg

DRUGS (1)
  1. TRIAMINIC THIN STRIPS COLD + COUGH (NCH)(DEXTROMETHORPHAN HYDROBROMIDE [Suspect]
     Dosage: 2 THIN STRIPS, ORAL
     Route: 048
     Dates: start: 20071203

REACTIONS (1)
  - LIP SWELLING [None]
